FAERS Safety Report 4333194-7 (Version None)
Quarter: 2004Q1

REPORT INFORMATION
  Report Type: 
  Country: None (occurrence: None)
  Receive Date: 20040330
  Receipt Date: 20040322
  Transmission Date: 20041129
  Serious: Yes (Hospitalization, Disabling)
  Sender: FDA-Public Use
  Company Number: TPA2004A00361

PATIENT
  Age: 70 Year
  Sex: Female
  Weight: 71.6683 kg

DRUGS (6)
  1. ACTOS [Suspect]
     Indication: DIABETES MELLITUS NON-INSULIN-DEPENDENT
     Dosage: SEE IMAGE
     Route: 048
     Dates: start: 19990101
  2. ACTOS [Suspect]
     Indication: GASTROOESOPHAGEAL REFLUX DISEASE
     Dosage: SEE IMAGE
     Route: 048
     Dates: start: 19990101
  3. ACIPHEX [Concomitant]
  4. LIPITOR [Concomitant]
  5. ZOLOFT [Concomitant]
  6. EVISTA [Concomitant]

REACTIONS (8)
  - ABASIA [None]
  - BACK PAIN [None]
  - BLOOD TRIGLYCERIDES INCREASED [None]
  - FALL [None]
  - FLANK PAIN [None]
  - KIDNEY SMALL [None]
  - SPINAL FRACTURE [None]
  - VASCULAR OCCLUSION [None]
